FAERS Safety Report 9245114 (Version 1)
Quarter: 2013Q1

REPORT INFORMATION
  Report Type: Spontaneous
  Country: US (occurrence: None)
  Receive Date: 20121130
  Receipt Date: 20121130
  Transmission Date: 20140127
  Serious: Yes (Other)
  Sender: FDA-Public Use
  Company Number: US201208004064

PATIENT
  Sex: Male
  Weight: 73.9 kg

DRUGS (4)
  1. BYETTA [Suspect]
     Indication: TYPE 2 DIABETES MELLITUS
     Route: 058
  2. METFORMIN (METFORMIN) [Concomitant]
  3. LISINOPRIL   /USA/ [Concomitant]
  4. LOVASTATIN (LOVASTATIN) [Concomitant]

REACTIONS (3)
  - Renal failure chronic [None]
  - Blood creatinine increased [None]
  - Weight decreased [None]
